FAERS Safety Report 7316283-4 (Version None)
Quarter: 2011Q1

REPORT INFORMATION
  Report Type: 
  Country: None (occurrence: None)
  Receive Date: 20110225
  Receipt Date: 20110216
  Transmission Date: 20110831
  Serious: Yes (Hospitalization)
  Sender: FDA-Public Use
  Company Number: US-ABBOTT-02P-163-0206069-00

PATIENT
  Sex: Female
  Weight: 83.99 kg

DRUGS (4)
  1. MAVIK [Suspect]
     Dates: start: 20000710
  2. ATENOLOL [Suspect]
     Indication: HYPERTENSION
     Dates: start: 20000811
  3. MAVIK [Suspect]
     Indication: HYPERTENSION
     Dates: start: 20001102
  4. ATENOLOL [Suspect]
     Dates: start: 20000616, end: 20000811

REACTIONS (10)
  - ATRIAL FIBRILLATION [None]
  - MELAENA [None]
  - ANAEMIA [None]
  - DYSPEPSIA [None]
  - ENDOSCOPY UPPER GASTROINTESTINAL TRACT NORMAL [None]
  - GASTROINTESTINAL HAEMORRHAGE [None]
  - MYOCARDIAL INFARCTION [None]
  - ANGINA UNSTABLE [None]
  - CHEST PAIN [None]
  - CARDIAC FAILURE CONGESTIVE [None]
